FAERS Safety Report 4264787-3 (Version None)
Quarter: 2004Q1

REPORT INFORMATION
  Report Type: 
  Country: None (occurrence: None)
  Receive Date: 20040105
  Receipt Date: 20030904
  Transmission Date: 20041129
  Serious: Yes (Hospitalization)
  Sender: FDA-Public Use
  Company Number: TEST00200006728

PATIENT
  Sex: Male
  Weight: 93.441 kg

DRUGS (4)
  1. ANDROGEL [Suspect]
     Indication: HYPOGONADISM MALE
     Dosage: 10 G DAILY, TD, 10 G DAILY TD
     Dates: start: 19981021, end: 20001111
  2. ANDROGEL [Suspect]
     Indication: HYPOGONADISM MALE
     Dosage: 10 G DAILY, TD, 10 G DAILY TD
     Dates: start: 20001115
  3. ASPIRIN [Concomitant]
  4. DYNACIRC [Concomitant]

REACTIONS (4)
  - BENIGN PROSTATIC HYPERPLASIA [None]
  - NOCTURIA [None]
  - POLLAKIURIA [None]
  - PROSTATIC SPECIFIC ANTIGEN INCREASED [None]
